FAERS Safety Report 23154017 (Version 1)
Quarter: 2023Q4

REPORT INFORMATION
  Report Type: Spontaneous
  Country: FR (occurrence: FR)
  Receive Date: 20231107
  Receipt Date: 20231107
  Transmission Date: 20240110
  Serious: Yes (Hospitalization)
  Sender: FDA-Public Use
  Company Number: None

PATIENT
  Age: 63 Year
  Sex: Male

DRUGS (9)
  1. AMOXICILLIN [Suspect]
     Active Substance: AMOXICILLIN
     Indication: Tooth infection
     Dosage: 1 DOSAGE FORM, Q8H (1 G 3 TIMES A DAY)
     Route: 048
     Dates: start: 20230814, end: 20230819
  2. AMOXICILLIN [Suspect]
     Active Substance: AMOXICILLIN
     Dosage: 2 DOSAGE FORM, Q8H (1 G 3 TIMES A DAY)
     Route: 048
     Dates: start: 20230819, end: 20230820
  3. CIPROFLOXACIN [Suspect]
     Active Substance: CIPROFLOXACIN
     Indication: Perichondritis
     Dosage: UNK
     Route: 048
     Dates: start: 20230820, end: 202309
  4. IVERMECTIN [Suspect]
     Active Substance: IVERMECTIN
     Indication: Pustule
     Dosage: UNK
     Route: 048
     Dates: start: 20230928, end: 20231007
  5. OFLOXACIN [Suspect]
     Active Substance: OFLOXACIN
     Indication: Perichondritis
     Dosage: UNK
     Route: 001
     Dates: start: 20230820, end: 20230827
  6. PRISTINAMYCIN [Suspect]
     Active Substance: PRISTINAMYCIN
     Indication: Perichondritis
     Dosage: UNK
     Route: 048
     Dates: start: 20230922, end: 20230929
  7. PRISTINAMYCIN [Suspect]
     Active Substance: PRISTINAMYCIN
     Dosage: UNK
     Route: 048
     Dates: start: 20231003, end: 20231010
  8. DEXAMETHASONE SODIUM PHOSPHATE\NYSTATIN\OXYTETRACYCLINE\POLYMYXIN B SU [Suspect]
     Active Substance: DEXAMETHASONE SODIUM PHOSPHATE\NYSTATIN\OXYTETRACYCLINE\POLYMYXIN B SULFATE
     Indication: Perichondritis
     Dosage: UNK
     Route: 001
     Dates: start: 20230911, end: 20230911
  9. AUGMENTIN [Suspect]
     Active Substance: AMOXICILLIN\CLAVULANATE POTASSIUM
     Indication: Perichondritis
     Dosage: UNK
     Route: 048
     Dates: start: 20230820, end: 202309

REACTIONS (4)
  - Pustule [Recovered/Resolved]
  - Localised oedema [Recovered/Resolved]
  - Eyelid oedema [Recovered/Resolved]
  - Rash pruritic [Recovered/Resolved]

NARRATIVE: CASE EVENT DATE: 20230825
